FAERS Safety Report 5656419-4 (Version None)
Quarter: 2008Q1

REPORT INFORMATION
  Report Type: 
  Country: None (occurrence: None)
  Receive Date: 20080309
  Receipt Date: 20080105
  Transmission Date: 20080703
  Serious: No
  Sender: FDA-Public Use
  Company Number: US-BAYER-200810121BCC

PATIENT
  Age: 61 Year
  Sex: Male
  Weight: 91 kg

DRUGS (6)
  1. ALEVE [Suspect]
     Indication: ARTHRALGIA
     Dosage: TOTAL DAILY DOSE: 660 MG  UNIT DOSE: 220 MG
     Route: 048
     Dates: start: 20080105
  2. ULTRAM [Concomitant]
  3. LISINOPRIL [Concomitant]
  4. CLARITIN [Concomitant]
  5. METFORMIN HCL [Concomitant]
  6. SINGULAIR [Concomitant]

REACTIONS (4)
  - CHILLS [None]
  - MALAISE [None]
  - PYREXIA [None]
  - VOMITING [None]
